FAERS Safety Report 6891763-4 (Version None)
Quarter: 2010Q3

REPORT INFORMATION
  Report Type: 
  Country: None (occurrence: None)
  Receive Date: 20100731
  Receipt Date: 20071009
  Transmission Date: 20110219
  Serious: No
  Sender: FDA-Public Use
  Company Number: US-PFIZER INC-2007075307

PATIENT
  Sex: Female
  Weight: 111.13 kg

DRUGS (2)
  1. NEURONTIN [Suspect]
     Indication: PAIN
     Dates: start: 20020122, end: 20040101
  2. DRUG, UNSPECIFIED [Concomitant]

REACTIONS (1)
  - IRITIS [None]
